FAERS Safety Report 16225820 (Version 5)
Quarter: 2019Q4

REPORT INFORMATION
  Report Type: Report from Study
  Country: US (occurrence: US)
  Receive Date: 20190422
  Receipt Date: 20191120
  Transmission Date: 20200122
  Serious: Yes (Other)
  Sender: FDA-Public Use
  Company Number: PHEH2019US016516

PATIENT
  Sex: Male

DRUGS (1)
  1. ENTRESTO [Suspect]
     Active Substance: SACUBITRIL\VALSARTAN
     Indication: CARDIAC FAILURE CONGESTIVE
     Dosage: UNK, BID
     Route: 048

REACTIONS (6)
  - Sneezing [Unknown]
  - Blood potassium increased [Recovering/Resolving]
  - Myocardial infarction [Unknown]
  - Ejection fraction decreased [Unknown]
  - Productive cough [Unknown]
  - Rhinorrhoea [Unknown]
